FAERS Safety Report 11040812 (Version 2)
Quarter: 2015Q2

REPORT INFORMATION
  Report Type: Spontaneous
  Country: US (occurrence: US)
  Receive Date: 20150416
  Receipt Date: 20150525
  Transmission Date: 20150821
  Serious: No
  Sender: FDA-Public Use
  Company Number: US-JNJFOC-20131204839

PATIENT
  Sex: Female
  Weight: 86.18 kg

DRUGS (5)
  1. MORPHINE [Concomitant]
     Active Substance: MORPHINE
     Indication: PAIN
     Dates: start: 2008
  2. MORPHINE [Concomitant]
     Active Substance: MORPHINE
     Indication: MULTIPLE SCLEROSIS
     Dates: start: 2008
  3. METOPROLOL [Concomitant]
     Active Substance: METOPROLOL
     Indication: MULTIPLE SCLEROSIS
     Route: 048
     Dates: start: 2013
  4. XARELTO [Suspect]
     Active Substance: RIVAROXABAN
     Indication: THROMBOSIS
     Route: 048
     Dates: start: 20131111
  5. METOPROLOL [Concomitant]
     Active Substance: METOPROLOL
     Indication: PAIN
     Route: 048
     Dates: start: 2013

REACTIONS (4)
  - Arthralgia [Not Recovered/Not Resolved]
  - Alopecia [Not Recovered/Not Resolved]
  - Bone pain [Not Recovered/Not Resolved]
  - Blood pressure increased [Not Recovered/Not Resolved]

NARRATIVE: CASE EVENT DATE: 2013
